FAERS Safety Report 5519764-9 (Version None)
Quarter: 2007Q4

REPORT INFORMATION
  Report Type: 
  Country: None (occurrence: None)
  Receive Date: 20071116
  Receipt Date: 20070820
  Transmission Date: 20080405
  Serious: No
  Sender: FDA-Public Use
  Company Number: A0668938A

PATIENT
  Age: 74 Year
  Sex: Male
  Weight: 106.8 kg

DRUGS (6)
  1. COREG CR [Suspect]
     Indication: HYPERTENSION
     Dosage: 20MG IN THE MORNING
     Route: 048
     Dates: start: 20070801, end: 20070802
  2. ALTACE [Concomitant]
  3. IMDUR [Concomitant]
  4. PLAVIX [Concomitant]
  5. VITAMIN E [Concomitant]
  6. STROVITE [Concomitant]

REACTIONS (2)
  - PHARMACEUTICAL PRODUCT COMPLAINT [None]
  - VENTRICULAR EXTRASYSTOLES [None]
